FAERS Safety Report 10100472 (Version 4)
Quarter: 2014Q2

REPORT INFORMATION
  Report Type: Report from Study
  Country: ZA (occurrence: ZA)
  Receive Date: 20140423
  Receipt Date: 20140513
  Transmission Date: 20141212
  Serious: Yes (Congenital Anomaly)
  Sender: FDA-Public Use
  Company Number: ZA-PFIZER INC-2012074226

PATIENT
  Sex: Female

DRUGS (5)
  1. VARENICLINE TARTRATE [Suspect]
     Indication: SMOKING CESSATION THERAPY
     Dosage: 0.5 MG, 1X/DAY
     Route: 064
     Dates: start: 20111117, end: 20111119
  2. VARENICLINE TARTRATE [Suspect]
     Dosage: 0.5 MG, 2X/DAY
     Route: 064
     Dates: start: 20111120, end: 20111123
  3. VARENICLINE TARTRATE [Suspect]
     Dosage: 1 MG, 2X/DAY
     Route: 064
     Dates: start: 20111124, end: 20120123
  4. PLACEBO [Suspect]
     Indication: SMOKING CESSATION THERAPY
     Dosage: 16 HOURLY
     Route: 064
     Dates: start: 20111110, end: 20120123
  5. VENTEZE TABLETS [Concomitant]
     Indication: ASTHMA
     Dosage: UNK
     Route: 064
     Dates: start: 1990

REACTIONS (2)
  - Foetal exposure during pregnancy [Not Recovered/Not Resolved]
  - Trisomy 21 [Not Recovered/Not Resolved]
